FAERS Safety Report 9539596 (Version 1)
Quarter: 2013Q3

REPORT INFORMATION
  Report Type: Spontaneous
  Country: PL (occurrence: None)
  Receive Date: 20130917
  Receipt Date: 20130917
  Transmission Date: 20140515
  Serious: Yes (Hospitalization, Other)
  Sender: FDA-Public Use
  Company Number: VAL_02723_2013

PATIENT
  Age: 33 Year
  Sex: Female

DRUGS (8)
  1. METOPROLOL [Suspect]
     Indication: TACHYCARDIA
     Route: 042
  2. METOPROLOL [Suspect]
     Indication: BLOOD PRESSURE INCREASED
     Route: 042
  3. GLYCERYL TRINITRATE [Suspect]
     Indication: PRODUCT USED FOR UNKNOWN INDICATION
  4. HEPARIN (HEPARIN) [Suspect]
     Indication: PRODUCT USED FOR UNKNOWN INDICATION
  5. FUROSEMIDE (FUROSEMIDE) [Suspect]
     Indication: PRODUCT USED FOR UNKNOWN INDICATION
  6. MORPHINE [Suspect]
  7. BROMOCRIPTINE [Concomitant]
  8. RAMIPRIL [Concomitant]

REACTIONS (4)
  - Cardiac arrest [None]
  - Cardiomyopathy [None]
  - Pulmonary embolism [None]
  - Brain natriuretic peptide increased [None]
